FAERS Safety Report 9224861 (Version 1)
Quarter: 2013Q2

REPORT INFORMATION
  Report Type: Spontaneous
  Country: BE (occurrence: BE)
  Receive Date: 20130411
  Receipt Date: 20130411
  Transmission Date: 20140414
  Serious: Yes (Death)
  Sender: FDA-Public Use
  Company Number: BE-PFIZER INC-2013110967

PATIENT
  Sex: 0

DRUGS (3)
  1. VORICONAZOLE [Suspect]
     Dosage: 6 MG/KG, UNK
     Route: 042
  2. VORICONAZOLE [Suspect]
     Dosage: 4 MG/KG, UNK
     Route: 042
  3. VORICONAZOLE [Suspect]
     Route: 048

REACTIONS (2)
  - Off label use [Fatal]
  - Zygomycosis [Fatal]
